FAERS Safety Report 5457440-1 (Version None)
Quarter: 2007Q3

REPORT INFORMATION
  Report Type: 
  Country: None (occurrence: None)
  Receive Date: 20070918
  Receipt Date: 20070907
  Transmission Date: 20080115
  Serious: Yes (Other)
  Sender: FDA-Public Use
  Company Number: PT-PFIZER INC-2007073094

PATIENT
  Sex: Female
  Weight: 84 kg

DRUGS (2)
  1. CHAMPIX [Suspect]
     Indication: SMOKING CESSATION THERAPY
     Route: 048
  2. NORVASC [Suspect]
     Route: 048
     Dates: start: 20070601, end: 20070906

REACTIONS (2)
  - BACK PAIN [None]
  - OEDEMA PERIPHERAL [None]
